FAERS Safety Report 7748084-7 (Version None)
Quarter: 2011Q3

REPORT INFORMATION
  Report Type: 
  Country: None (occurrence: None)
  Receive Date: 20110913
  Receipt Date: 20110817
  Transmission Date: 20111222
  Serious: No
  Sender: FDA-Public Use
  Company Number: US-ALLERGAN-1111118US

PATIENT
  Age: 34 Year
  Sex: Female

DRUGS (1)
  1. LATISSE [Suspect]
     Indication: GROWTH OF EYELASHES
     Dosage: 1 GTT, QHS
     Route: 061
     Dates: start: 20110810, end: 20110814

REACTIONS (3)
  - EYELID SENSORY DISORDER [None]
  - SKIN DISCOLOURATION [None]
  - EYELIDS PRURITUS [None]
